FAERS Safety Report 7282112 (Version 4)
Quarter: 2013Q2

REPORT INFORMATION
  Report Type: Spontaneous
  Country: US (occurrence: None)
  Receive Date: 20091201
  Receipt Date: 20121203
  Transmission Date: 20140414
  Serious: Yes (Hospitalization)
  Sender: FDA-Public Use
  Company Number: 2009SP017640

PATIENT
  Age: 26 Year
  Sex: Female
  Weight: 70.3 kg

DRUGS (1)
  1. NUVARING (ETONOGESTREL (+) ETHINYL ESTRADIOL) VAGINAL RING [Suspect]
     Indication: CONTRACEPTION
     Dosage: 1 DF; QM;
     Dates: start: 200506, end: 200606

REACTIONS (20)
  - DEEP VEIN THROMBOSIS [None]
  - DYSTHYMIC DISORDER [None]
  - Scar [None]
  - Scar [None]
  - Deep vein thrombosis [None]
  - Pain [None]
  - Dysthymic disorder [None]
  - Headache [None]
  - Haematoma [None]
  - Antiphospholipid antibodies positive [None]
  - Haematocrit decreased [None]
  - Chest pain [None]
  - Dyspnoea [None]
  - Contusion [None]
  - Acne [None]
  - Smear cervix abnormal [None]
  - Loop electrosurgical excision procedure [None]
  - Fibrocystic breast disease [None]
  - Oral herpes [None]
  - Gastroenteritis viral [None]
